FAERS Safety Report 9633067 (Version 1)
Quarter: 2013Q4

REPORT INFORMATION
  Report Type: Spontaneous
  Country: TR (occurrence: TR)
  Receive Date: 20131018
  Receipt Date: 20131018
  Transmission Date: 20140711
  Serious: Yes (Death)
  Sender: FDA-Public Use
  Company Number: TR-RB-059595-13

PATIENT
  Sex: Male

DRUGS (2)
  1. SUBOXONE TABLET [Suspect]
     Indication: PRODUCT USED FOR UNKNOWN INDICATION
     Dosage: DOSING DETAILS UNKNOWN; REPORTED HE TOOK A SUBOXONE TABLET
     Route: 065
  2. BENZODIAZEPINE [Suspect]
     Indication: ALCOHOLISM
     Dosage: DAILY DOSE WAS STATED AS 4X1, FURTHER CLARIFICATION WAS NOT OBTAINED
     Route: 048

REACTIONS (1)
  - Respiratory arrest [Fatal]
